FAERS Safety Report 13455674 (Version 1)
Quarter: 2017Q2

REPORT INFORMATION
  Report Type: Report from Study
  Country: US (occurrence: US)
  Receive Date: 20170418
  Receipt Date: 20170418
  Transmission Date: 20170830
  Serious: Yes (Hospitalization)
  Sender: FDA-Public Use
  Company Number: US-ACTELION-A-NJ2017-152576

PATIENT
  Age: 62 Year
  Sex: Male

DRUGS (22)
  1. ASPIRIN. [Concomitant]
     Active Substance: ASPIRIN
  2. CIALIS [Concomitant]
     Active Substance: TADALAFIL
  3. LANTUS [Concomitant]
     Active Substance: INSULIN GLARGINE
  4. SENNA [Concomitant]
     Active Substance: SENNA LEAF\SENNOSIDES\SENNOSIDES A AND B
  5. DOCUSATE [Concomitant]
     Active Substance: DOCUSATE
  6. MAGNESIUM [Concomitant]
     Active Substance: MAGNESIUM
  7. VALCYTE [Concomitant]
     Active Substance: VALGANCICLOVIR HYDROCHLORIDE
  8. TRACLEER [Suspect]
     Active Substance: BOSENTAN
     Indication: PULMONARY ARTERIAL HYPERTENSION
     Dosage: 62.5 MG, BID
     Route: 048
     Dates: start: 20170315
  9. NOVOLOG [Concomitant]
     Active Substance: INSULIN ASPART
  10. WARFARIN [Concomitant]
     Active Substance: WARFARIN
  11. ALLOPURINOL. [Concomitant]
     Active Substance: ALLOPURINOL
  12. CLOTRIMAZOLE. [Concomitant]
     Active Substance: CLOTRIMAZOLE
  13. METOPROLOL. [Concomitant]
     Active Substance: METOPROLOL
  14. PANTOPRAZOLE [Concomitant]
     Active Substance: PANTOPRAZOLE
  15. LASIX [Concomitant]
     Active Substance: FUROSEMIDE
  16. MULTIVITAMIN [Concomitant]
     Active Substance: VITAMINS
  17. NYSTATIN. [Concomitant]
     Active Substance: NYSTATIN
  18. TACROLIMUS. [Concomitant]
     Active Substance: TACROLIMUS
  19. CALCIUM [Concomitant]
     Active Substance: CALCIUM
  20. ESBRIET [Concomitant]
     Active Substance: PIRFENIDONE
  21. SPIRONOLACTONE. [Concomitant]
     Active Substance: SPIRONOLACTONE
  22. FERROUS SULFATE. [Concomitant]
     Active Substance: FERROUS SULFATE

REACTIONS (1)
  - Lung transplant [Not Recovered/Not Resolved]

NARRATIVE: CASE EVENT DATE: 20170410
